FAERS Safety Report 15867558 (Version 1)
Quarter: 2019Q1

REPORT INFORMATION
  Report Type: Spontaneous
  Country: US (occurrence: US)
  Receive Date: 20190125
  Receipt Date: 20190125
  Transmission Date: 20190417
  Serious: No
  Sender: FDA-Public Use
  Company Number: US-PFIZER INC-2019033913

PATIENT
  Age: 44 Year
  Sex: Male

DRUGS (1)
  1. SOMAVERT [Suspect]
     Active Substance: PEGVISOMANT
     Dosage: 30 MG, DAILY
     Dates: start: 20171013

REACTIONS (10)
  - Polydipsia [Unknown]
  - Polyuria [Unknown]
  - Hyperhidrosis [Unknown]
  - Hand deformity [Unknown]
  - Paraesthesia [Unknown]
  - Arthralgia [Unknown]
  - Hypoaesthesia [Unknown]
  - Fatigue [Unknown]
  - Nose deformity [Unknown]
  - Headache [Unknown]
